FAERS Safety Report 19437829 (Version 1)
Quarter: 2021Q2

REPORT INFORMATION
  Report Type: Spontaneous
  Country: US (occurrence: US)
  Receive Date: 20210618
  Receipt Date: 20210618
  Transmission Date: 20210717
  Serious: Yes (Other)
  Sender: FDA-Public Use
  Company Number: NVSC2021US070294

PATIENT
  Age: 3 Year
  Sex: Female

DRUGS (2)
  1. ARZERRA [Suspect]
     Active Substance: OFATUMUMAB
     Indication: HEART TRANSPLANT
     Dosage: UNK
     Route: 065
  2. ECULIZUMAB [Suspect]
     Active Substance: ECULIZUMAB
     Indication: HEART TRANSPLANT
     Dosage: UNK
     Route: 065

REACTIONS (2)
  - Product use in unapproved indication [Unknown]
  - Heart transplant rejection [Unknown]
